FAERS Safety Report 12566516 (Version 3)
Quarter: 2016Q3

REPORT INFORMATION
  Report Type: Report from Study
  Country: CA (occurrence: CA)
  Receive Date: 20160718
  Receipt Date: 20160913
  Transmission Date: 20161109
  Serious: Yes (Other)
  Sender: FDA-Public Use
  Company Number: CA-ABBVIE-16K-028-1677203-00

PATIENT
  Sex: Male
  Weight: 22.5 kg

DRUGS (1)
  1. HUMIRA [Suspect]
     Active Substance: ADALIMUMAB
     Indication: JUVENILE IDIOPATHIC ARTHRITIS
     Route: 058
     Dates: start: 20150827

REACTIONS (1)
  - Pupillary disorder [Not Recovered/Not Resolved]

NARRATIVE: CASE EVENT DATE: 2016
